FAERS Safety Report 7086792-4 (Version None)
Quarter: 2010Q4

REPORT INFORMATION
  Report Type: 
  Country: None (occurrence: None)
  Receive Date: 20101105
  Receipt Date: 20101029
  Transmission Date: 20110411
  Serious: Yes (Other)
  Sender: FDA-Public Use
  Company Number: DE-WATSON-2010-14515

PATIENT
  Age: 17 Year
  Sex: Male

DRUGS (2)
  1. FLUOROURACIL [Suspect]
     Indication: METASTATIC NEOPLASM
     Dosage: 1000 MG/M2, DAYS 1-5
     Route: 042
  2. CISPLATIN [Suspect]
     Indication: METASTATIC NEOPLASM
     Dosage: 100 MG/M2, DAY 1
     Route: 042

REACTIONS (1)
  - PULMONARY EMBOLISM [None]
